FAERS Safety Report 7383280-2 (Version None)
Quarter: 2011Q1

REPORT INFORMATION
  Report Type: 
  Country: None (occurrence: None)
  Receive Date: 20110325
  Receipt Date: 20110325
  Transmission Date: 20110831
  Serious: Yes (Hospitalization)
  Sender: FDA-Public Use
  Company Number: None

PATIENT
  Age: 91 Year
  Sex: Male
  Weight: 50 kg

DRUGS (7)
  1. ACETAMINOPHEN [Concomitant]
  2. CLARITIN [Concomitant]
  3. LOTENSIN [Concomitant]
  4. REMERON [Concomitant]
  5. COUMADIN [Suspect]
     Indication: DEEP VEIN THROMBOSIS
     Dosage: 5MG DAILY PO CHRONIC
     Route: 048
  6. SOLIFENACIN [Concomitant]
  7. RIVASTIGMINE [Concomitant]

REACTIONS (2)
  - POST PROCEDURAL HAEMATURIA [None]
  - INTERNATIONAL NORMALISED RATIO INCREASED [None]
